FAERS Safety Report 25616695 (Version 5)
Quarter: 2025Q3

REPORT INFORMATION
  Report Type: Spontaneous
  Country: GB (occurrence: GB)
  Receive Date: 20250729
  Receipt Date: 20250818
  Transmission Date: 20251021
  Serious: Yes (Hospitalization, Other)
  Sender: MYLAN
  Company Number: GB-MYLANLABS-2025M1046213

PATIENT
  Sex: Male

DRUGS (2)
  1. CLOZAPINE [Suspect]
     Active Substance: CLOZAPINE
     Indication: Schizophrenia
  2. OLANZAPINE [Concomitant]
     Active Substance: OLANZAPINE

REACTIONS (6)
  - Inguinal hernia strangulated [Unknown]
  - Intestinal obstruction [Unknown]
  - Ileus paralytic [Unknown]
  - Thrombocytosis [Not Recovered/Not Resolved]
  - Neutrophilia [Unknown]
  - Leukocytosis [Unknown]

NARRATIVE: CASE EVENT DATE: 20250529
